FAERS Safety Report 19000433 (Version 1)
Quarter: 2021Q1

REPORT INFORMATION
  Report Type: Spontaneous
  Country: US (occurrence: US)
  Receive Date: 20210311
  Receipt Date: 20210311
  Transmission Date: 20210420
  Serious: Yes (Other)
  Sender: FDA-Public Use
  Company Number: US-BAUSCH-BL-2021-007650

PATIENT
  Sex: Female

DRUGS (7)
  1. HYDROCORTISONE. [Suspect]
     Active Substance: HYDROCORTISONE
     Indication: COVID-19
     Route: 065
     Dates: start: 202005
  2. REMDESIVIR. [Suspect]
     Active Substance: REMDESIVIR
     Route: 065
     Dates: start: 202005, end: 202005
  3. SARS?COV? 2 CONVALESCENT PLASMA [Concomitant]
     Indication: COVID-19
     Dosage: TWO UNITS
     Route: 065
     Dates: start: 202005, end: 202005
  4. BIVALIRUDIN. [Concomitant]
     Active Substance: BIVALIRUDIN
     Indication: ANTICOAGULANT THERAPY
     Dates: start: 202005
  5. TOCILIZUMAB. [Suspect]
     Active Substance: TOCILIZUMAB
     Indication: COVID-19
     Dosage: TWO DOSES (A TOTAL OF 8 MG/ KG)
     Route: 065
     Dates: start: 202005, end: 202005
  6. REMDESIVIR. [Suspect]
     Active Substance: REMDESIVIR
     Indication: COVID-19
     Dosage: ON DAY 1
     Route: 065
     Dates: start: 202005, end: 202005
  7. HYDROCORTISONE. [Suspect]
     Active Substance: HYDROCORTISONE
     Indication: PRODUCT USE IN UNAPPROVED INDICATION

REACTIONS (3)
  - Enterocolitis haemorrhagic [Unknown]
  - Cytomegalovirus infection [Recovered/Resolved]
  - Product use in unapproved indication [Unknown]

NARRATIVE: CASE EVENT DATE: 202005
